FAERS Safety Report 22146720 (Version 1)
Quarter: 2023Q1

REPORT INFORMATION
  Report Type: Spontaneous
  Country: HR (occurrence: HR)
  Receive Date: 20230328
  Receipt Date: 20230328
  Transmission Date: 20230418
  Serious: Yes (Hospitalization, Other)
  Sender: FDA-Public Use
  Company Number: HR-PFIZER INC-PV202300055981

PATIENT
  Sex: Male

DRUGS (2)
  1. BOSUTINIB [Suspect]
     Active Substance: BOSUTINIB
     Indication: Chronic myeloid leukaemia
     Dosage: 500 MG
     Route: 048
     Dates: start: 202109, end: 202205
  2. BOSUTINIB [Suspect]
     Active Substance: BOSUTINIB
     Dosage: 400 MG
     Route: 048
     Dates: start: 202205

REACTIONS (3)
  - Atrioventricular block complete [Recovered/Resolved]
  - Diarrhoea [Recovered/Resolved]
  - Abdominal distension [Recovered/Resolved]

NARRATIVE: CASE EVENT DATE: 20220501
